FAERS Safety Report 5465241-3 (Version None)
Quarter: 2007Q3

REPORT INFORMATION
  Report Type: 
  Country: None (occurrence: None)
  Receive Date: 20070924
  Receipt Date: 20070918
  Transmission Date: 20080115
  Serious: Yes (Other)
  Sender: FDA-Public Use
  Company Number: PHEH2007US12475

PATIENT
  Sex: Male

DRUGS (2)
  1. ENABLEX [Suspect]
     Indication: HYPERTONIC BLADDER
     Dosage: 7.5 MG, QD
     Route: 048
     Dates: start: 20070501
  2. ENABLEX [Suspect]
     Dosage: 15 MG, QD
     Route: 048

REACTIONS (2)
  - CATARACT [None]
  - VISION BLURRED [None]
